FAERS Safety Report 12331332 (Version 1)
Quarter: 2016Q2

REPORT INFORMATION
  Report Type: Spontaneous
  Country: US (occurrence: None)
  Receive Date: 20160503
  Receipt Date: 20160503
  Transmission Date: 20160815
  Serious: Yes (Hospitalization)
  Sender: FDA-Public Use
  Company Number: None

PATIENT
  Sex: Female

DRUGS (2)
  1. CAPECITABINE 500MG [Suspect]
     Active Substance: CAPECITABINE
     Indication: COLON CANCER
     Dosage: 500MG X 10 DAYS ON, 11 DAYS OFF  TWICE DAILY ORAL
     Route: 048
     Dates: start: 20160411
  2. CAPECITABINE 150MG [Suspect]
     Active Substance: CAPECITABINE
     Indication: COLON CANCER
     Dosage: 450MG X 10 DAYS ON, 11 DAYS OFF  TWICE DAILY ORAL
     Route: 048
     Dates: start: 20160411

REACTIONS (1)
  - Loss of consciousness [None]
